FAERS Safety Report 8019137-3 (Version None)
Quarter: 2011Q4

REPORT INFORMATION
  Report Type: 
  Country: None (occurrence: None)
  Receive Date: 20111229
  Receipt Date: 20111219
  Transmission Date: 20120403
  Serious: No
  Sender: FDA-Public Use
  Company Number: DAV-AE-MTX-11-069

PATIENT
  Age: 65 Year
  Sex: Male

DRUGS (6)
  1. HUMIRA [Suspect]
  2. FOLIC ACID [Concomitant]
  3. METHOTREXATE [Suspect]
     Indication: RHEUMATOID ARTHRITIS
     Dosage: 1 IN 1 WK
  4. VITAMIN B COMPLEX CAP [Concomitant]
  5. ACETYLSALICYLIC ACID SRT [Concomitant]
  6. PREDNISONE TAB [Concomitant]

REACTIONS (1)
  - INTERVERTEBRAL DISC DISORDER [None]
